FAERS Safety Report 5670200-1 (Version None)
Quarter: 2008Q1

REPORT INFORMATION
  Report Type: 
  Country: None (occurrence: None)
  Receive Date: 20080312
  Receipt Date: 20080303
  Transmission Date: 20080703
  Serious: Yes (Other)
  Sender: FDA-Public Use
  Company Number: 200803AGG00787

PATIENT
  Age: 67 Year
  Sex: Male

DRUGS (2)
  1. TIROFIBAN HYDROCHLORIDE (TIROFIBAN HCL) (MEDICURE, INC) [Suspect]
  2. ABBOKINASE [Suspect]

REACTIONS (3)
  - CEREBRAL HAEMORRHAGE [None]
  - IIIRD NERVE PARALYSIS [None]
  - POST PROCEDURAL COMPLICATION [None]
